FAERS Safety Report 5609385-1 (Version None)
Quarter: 2008Q1

REPORT INFORMATION
  Report Type: 
  Country: None (occurrence: None)
  Receive Date: 20080131
  Receipt Date: 20080121
  Transmission Date: 20080703
  Serious: Yes (Hospitalization, Other)
  Sender: FDA-Public Use
  Company Number: US-KINGPHARMUSA00001-K200800072

PATIENT

DRUGS (9)
  1. ALTACE [Suspect]
     Dosage: 5 MG, QD
     Route: 048
     Dates: end: 20070907
  2. ALTACE [Suspect]
     Dosage: UNK, QD
     Dates: start: 20070908
  3. DEPAKOTE [Suspect]
     Dosage: 3 U, QD
     Route: 048
     Dates: end: 20070907
  4. DEPAKOTE [Suspect]
     Dosage: UNK, QD
     Dates: start: 20070908
  5. ZOLOFT [Suspect]
     Dosage: 100 MG, QD
     Route: 048
     Dates: end: 20070907
  6. LORMETAZEPAM [Suspect]
     Dosage: 2 MG, QD
     Route: 048
     Dates: end: 20070907
  7. XANAX [Concomitant]
     Dosage: 1.5 U, QD
     Route: 048
  8. AMLOR [Concomitant]
     Dosage: 5 MG, QD
     Route: 048
  9. ELISOR [Concomitant]
     Dosage: 10 MG, QD
     Route: 048

REACTIONS (7)
  - BALANCE DISORDER [None]
  - COGNITIVE DISORDER [None]
  - DYSTHYMIC DISORDER [None]
  - GAIT DISTURBANCE [None]
  - HYPONATRAEMIA [None]
  - POSTURE ABNORMAL [None]
  - TREMOR [None]
